FAERS Safety Report 5016303-6 (Version None)
Quarter: 2006Q2

REPORT INFORMATION
  Report Type: 
  Country: None (occurrence: None)
  Receive Date: 20060414
  Receipt Date: 20060125
  Transmission Date: 20061013
  Serious: No
  Sender: FDA-Public Use
  Company Number: 2006SP000438

PATIENT
  Age: 71 Year
  Sex: Male
  Weight: 90.7194 kg

DRUGS (7)
  1. LUNESTA [Suspect]
     Indication: INSOMNIA
     Dosage: SEE IMAGE
     Route: 048
     Dates: start: 20050401, end: 20050101
  2. LUNESTA [Suspect]
     Indication: INSOMNIA
     Dosage: SEE IMAGE
     Route: 048
     Dates: start: 20050101
  3. PAXIL [Concomitant]
  4. PRAVACHOL [Concomitant]
  5. TYLENOL (CAPLET) [Concomitant]
  6. DOXAZOSIN [Concomitant]
  7. CALCIUM GLUCONATE [Concomitant]

REACTIONS (1)
  - MIDDLE INSOMNIA [None]
